FAERS Safety Report 24009389 (Version 1)
Quarter: 2024Q2

REPORT INFORMATION
  Report Type: Spontaneous
  Country: US (occurrence: US)
  Receive Date: 20240625
  Receipt Date: 20240625
  Transmission Date: 20240716
  Serious: Yes (Hospitalization, Other)
  Sender: FDA-Public Use
  Company Number: US-Accord-424482

PATIENT
  Age: 54 Year
  Sex: Female
  Weight: 56.25 kg

DRUGS (7)
  1. LEVOTHYROXINE [Suspect]
     Active Substance: LEVOTHYROXINE\LEVOTHYROXINE SODIUM
     Indication: Hypothyroidism
     Dosage: BY MOUTH ONCE DAILY, 60 MCG
     Dates: start: 202401
  2. LAMICTAL [Concomitant]
     Active Substance: LAMOTRIGINE
     Indication: Epilepsy
     Dosage: STRENGTH: 150 MG?ONE MORNING AND TWO AT NIGHT
  3. CLOBAZAM [Concomitant]
     Active Substance: CLOBAZAM
     Indication: Epilepsy
     Dosage: 10MG KEPT INCREASING CAUSE WAS NOT WORKING 1.5 AND 2 AT NIGHT, 1?IN MORNING AND 1 AT NIGHT
  4. PREGABALIN [Concomitant]
     Active Substance: PREGABALIN
     Dosage: STRENGTH: 75MG, 1 TWICE A DAY NOTHING WAS HELPING THE PAIN
  5. LORAZEPAM [Concomitant]
     Active Substance: LORAZEPAM
     Dosage: STRENGTH: 1MG
  6. ZOLPIDEM [Concomitant]
     Active Substance: ZOLPIDEM TARTRATE
     Indication: Insomnia
     Dosage: 5MG 1 TABLET AT NIGHT
  7. MELOXICAM [Concomitant]
     Active Substance: MELOXICAM
     Dosage: 15MG 90CT TAKES 1 BY MOUTH ONCE DAILY

REACTIONS (13)
  - Seizure [Unknown]
  - Irritability [Unknown]
  - Frustration tolerance decreased [Unknown]
  - Anger [Unknown]
  - Weight decreased [Unknown]
  - Thinking abnormal [Unknown]
  - Crying [Unknown]
  - Nervousness [Unknown]
  - Fatigue [Unknown]
  - Energy increased [Unknown]
  - Abdominal discomfort [Unknown]
  - Hyponatraemia [Unknown]
  - Water intoxication [Unknown]

NARRATIVE: CASE EVENT DATE: 20240514
